FAERS Safety Report 7812592-0 (Version None)
Quarter: 2011Q3

REPORT INFORMATION
  Report Type: 
  Country: None (occurrence: None)
  Receive Date: 20110929
  Receipt Date: 20110915
  Transmission Date: 20111222
  Serious: No
  Sender: FDA-Public Use
  Company Number: 11-579

PATIENT
  Age: 38 Year
  Sex: Male

DRUGS (1)
  1. IBUPROFEN [Suspect]
     Dosage: 60-80 TABLETS - QD, ORAL
     Route: 048

REACTIONS (9)
  - DRUG DEPENDENCE [None]
  - HYPOKALAEMIA [None]
  - PARAPARESIS [None]
  - RENAL TUBULAR ACIDOSIS [None]
  - VOMITING [None]
  - ABDOMINAL PAIN [None]
  - NEPHROLITHIASIS [None]
  - MUSCULAR WEAKNESS [None]
  - CIRCULATORY COLLAPSE [None]
